FAERS Safety Report 7656933-6 (Version None)
Quarter: 2011Q3

REPORT INFORMATION
  Report Type: 
  Country: None (occurrence: None)
  Receive Date: 20110804
  Receipt Date: 20110729
  Transmission Date: 20111222
  Serious: Yes (Other)
  Sender: FDA-Public Use
  Company Number: US-PFIZER INC-2011155831

PATIENT
  Age: 79 Year

DRUGS (2)
  1. VIAGRA [Suspect]
     Indication: ERECTILE DYSFUNCTION
     Dosage: 50 MG, UNK
  2. PREDNISONE [Concomitant]

REACTIONS (4)
  - SINUS HEADACHE [None]
  - PLEURITIC PAIN [None]
  - HEADACHE [None]
  - FEELING ABNORMAL [None]
